FAERS Safety Report 8400393-4 (Version None)
Quarter: 2012Q2

REPORT INFORMATION
  Report Type: 
  Country: None (occurrence: None)
  Receive Date: 20120531
  Receipt Date: 20120521
  Transmission Date: 20120825
  Serious: Yes (Other)
  Sender: FDA-Public Use
  Company Number: BR-ABBOTT-12P-020-0936590-00

PATIENT
  Sex: Female

DRUGS (6)
  1. DEPAKOTE [Suspect]
     Indication: CONVULSION
     Dosage: 1 TABLET DAILY
  2. TOPIRAMATE [Concomitant]
     Indication: PRODUCT USED FOR UNKNOWN INDICATION
     Dosage: 3 TABLETS DAILY
  3. DEPAKOTE ER [Suspect]
     Indication: CONVULSION
  4. DEPAKOTE [Suspect]
     Dosage: 2 TABLETS DAILY
  5. DEPAKOTE ER [Suspect]
     Indication: EPILEPSY
     Dates: end: 20120420
  6. DEPAKOTE [Suspect]
     Dosage: 2 TABLETS DAILY

REACTIONS (4)
  - UNEVALUABLE EVENT [None]
  - WEIGHT INCREASED [None]
  - CONVULSION [None]
  - DRUG INEFFECTIVE [None]
